FAERS Safety Report 21322845 (Version 1)
Quarter: 2022Q3

REPORT INFORMATION
  Report Type: Report from Study
  Country: US (occurrence: US)
  Receive Date: 20220912
  Receipt Date: 20220912
  Transmission Date: 20221026
  Serious: Yes (Hospitalization)
  Sender: FDA-Public Use
  Company Number: US-ABBVIE-22K-163-4349982-00

PATIENT
  Sex: Male

DRUGS (3)
  1. SKYRIZI [Suspect]
     Active Substance: RISANKIZUMAB-RZAA
     Indication: Psoriasis
     Dosage: WEEK 0
     Route: 058
     Dates: start: 2021, end: 2021
  2. SKYRIZI [Suspect]
     Active Substance: RISANKIZUMAB-RZAA
     Indication: Psoriatic arthropathy
     Dosage: WEEK 4
     Route: 058
     Dates: start: 2021, end: 2021
  3. SKYRIZI [Suspect]
     Active Substance: RISANKIZUMAB-RZAA
     Route: 058
     Dates: start: 20220329

REACTIONS (9)
  - Dehydration [Unknown]
  - Pain in extremity [Unknown]
  - Psoriatic arthropathy [Unknown]
  - Therapeutic response unexpected [Unknown]
  - Impaired work ability [Unknown]
  - Pre-existing condition improved [Unknown]
  - Psoriasis [Unknown]
  - Therapeutic product effect incomplete [Unknown]
  - Gout [Unknown]

NARRATIVE: CASE EVENT DATE: 20220101
